FAERS Safety Report 7217634-1 (Version None)
Quarter: 2011Q1

REPORT INFORMATION
  Report Type: 
  Country: None (occurrence: None)
  Receive Date: 20110110
  Receipt Date: 20110104
  Transmission Date: 20110831
  Serious: Yes (Other)
  Sender: FDA-Public Use
  Company Number: CA-ROCHE-751330

PATIENT
  Sex: Female
  Weight: 77.1 kg

DRUGS (4)
  1. ARAVA [Concomitant]
  2. CELEBREX [Concomitant]
  3. TOCILIZUMAB [Suspect]
     Indication: RHEUMATOID ARTHRITIS
     Dosage: FREQUENCY: 4 WEEKS FORM: INFUSION.
     Route: 042
     Dates: start: 20100928
  4. CALCIUM [Concomitant]

REACTIONS (1)
  - WOUND [None]
